FAERS Safety Report 5480996-X (Version None)
Quarter: 2007Q4

REPORT INFORMATION
  Report Type: 
  Country: None (occurrence: None)
  Receive Date: 20071009
  Receipt Date: 20070927
  Transmission Date: 20080405
  Serious: Yes (Hospitalization, Other)
  Sender: FDA-Public Use
  Company Number: JP-PFIZER INC-2007076989

PATIENT
  Sex: Female

DRUGS (2)
  1. CABERGOLINE [Suspect]
     Indication: PARKINSON'S DISEASE
     Route: 050
  2. EC DOPARL [Concomitant]
     Indication: PARKINSON'S DISEASE
     Route: 050

REACTIONS (2)
  - DELUSION [None]
  - HALLUCINATION [None]
